FAERS Safety Report 18942368 (Version 1)
Quarter: 2021Q1

REPORT INFORMATION
  Report Type: Spontaneous
  Country: US (occurrence: US)
  Receive Date: 20210225
  Receipt Date: 20210225
  Transmission Date: 20210420
  Serious: Yes (Life-Threatening)
  Sender: FDA-Public Use
  Company Number: US-PFIZER INC-2021168965

PATIENT
  Age: 56 Year
  Sex: Male

DRUGS (1)
  1. RITUXIMAB. [Suspect]
     Active Substance: RITUXIMAB
     Indication: EPSTEIN-BARR VIRUS INFECTION
     Dosage: UNK (INFUSION)

REACTIONS (1)
  - Stress cardiomyopathy [Recovered/Resolved]
